FAERS Safety Report 21354253 (Version 1)
Quarter: 2022Q3

REPORT INFORMATION
  Report Type: Spontaneous
  Country: US (occurrence: None)
  Receive Date: 20220919
  Receipt Date: 20220919
  Transmission Date: 20221027
  Serious: No
  Sender: FDA-Public Use
  Company Number: None

PATIENT
  Sex: Female

DRUGS (3)
  1. HALCINONIDE [Suspect]
     Active Substance: HALCINONIDE
  2. AMCINONIDE [Suspect]
     Active Substance: AMCINONIDE
  3. FLUOCINONIDE [Suspect]
     Active Substance: FLUOCINONIDE

REACTIONS (1)
  - Therapeutic response changed [None]
